FAERS Safety Report 9278542 (Version 2)
Quarter: 2013Q2

REPORT INFORMATION
  Report Type: Spontaneous
  Country: US (occurrence: US)
  Receive Date: 20130508
  Receipt Date: 20130604
  Transmission Date: 20140414
  Serious: Yes (Other)
  Sender: FDA-Public Use
  Company Number: US-GLAXOSMITHKLINE-A1022500A

PATIENT
  Sex: Male

DRUGS (2)
  1. BENLYSTA [Suspect]
     Indication: PRODUCT USED FOR UNKNOWN INDICATION
     Route: 042
  2. NO CONCURRENT MEDICATION [Concomitant]

REACTIONS (2)
  - VIIth nerve paralysis [Not Recovered/Not Resolved]
  - Viral infection [Not Recovered/Not Resolved]
